FAERS Safety Report 4700055-0 (Version None)
Quarter: 2005Q2

REPORT INFORMATION
  Report Type: 
  Country: None (occurrence: None)
  Receive Date: 20050627
  Receipt Date: 20050624
  Transmission Date: 20051028
  Serious: Yes (Hospitalization)
  Sender: FDA-Public Use
  Company Number: 163

PATIENT
  Age: 68 Year
  Sex: Female

DRUGS (9)
  1. MELPHALAN [Suspect]
     Indication: MULTIPLE MYELOMA
     Dosage: 330MG CYCLIC
     Route: 042
     Dates: start: 20050512
  2. THALIDOMIDE [Suspect]
     Indication: MULTIPLE MYELOMA
     Dosage: 50MG PER DAY
     Route: 048
     Dates: start: 20050304, end: 20050509
  3. DEXAMETHASONE [Suspect]
     Indication: MULTIPLE MYELOMA
     Dosage: 20MG PER DAY
     Route: 048
     Dates: start: 20050418, end: 20050421
  4. ZYRTEC [Concomitant]
  5. LOVENOX [Concomitant]
  6. AMBISOME [Concomitant]
  7. PEPCID [Concomitant]
  8. ZOLOFT [Concomitant]
  9. ROBITUSSIN [Concomitant]

REACTIONS (10)
  - COUGH [None]
  - DIARRHOEA [None]
  - FLUID OVERLOAD [None]
  - HYPOXIA [None]
  - LUNG INFILTRATION [None]
  - PLEURAL EFFUSION [None]
  - PNEUMONIA INFLUENZAL [None]
  - PYREXIA [None]
  - RASH MACULO-PAPULAR [None]
  - SINUSITIS [None]
